FAERS Safety Report 16735492 (Version 1)
Quarter: 2019Q4

REPORT INFORMATION
  Report Type: Spontaneous
  Country: US (occurrence: US)
  Receive Date: 20190823
  Receipt Date: 20190823
  Transmission Date: 20200122
  Serious: Yes (Hospitalization)
  Sender: FDA-Public Use
  Company Number: None

PATIENT
  Age: 62 Year
  Sex: Male

DRUGS (8)
  1. WAL-ZYR, WELLBUTRIN, ZORTRESS [Concomitant]
  2. TACROLIMUS. [Suspect]
     Active Substance: TACROLIMUS
     Indication: LUNG TRANSPLANT
     Route: 048
     Dates: start: 20190423
  3. ALBUTEROL, ASPIRIN, BYSTOLIC [Concomitant]
  4. CRESTOR, FLUTICASONE, FUROSEMIDE [Concomitant]
  5. PHENYTOIN, PLAVIX, PREDNISONE [Concomitant]
  6. SPIRIVA, VALGANCICLOV [Concomitant]
  7. TACROLIMUS. [Suspect]
     Active Substance: TACROLIMUS
     Indication: LUNG TRANSPLANT
     Dosage: ?          OTHER FREQUENCY:Q EVENING;?
     Route: 048
     Dates: start: 20190423
  8. LEVOTHYROXIN, MULTI-VITAMIN, NAPROSYN [Concomitant]

REACTIONS (1)
  - Respiratory failure [None]

NARRATIVE: CASE EVENT DATE: 20190815
